FAERS Safety Report 18381461 (Version 1)
Quarter: 2020Q4

REPORT INFORMATION
  Report Type: Spontaneous
  Country: NL (occurrence: NL)
  Receive Date: 20201014
  Receipt Date: 20201014
  Transmission Date: 20210114
  Serious: Yes (Other)
  Sender: FDA-Public Use
  Company Number: NL-TEVA-2020-NL-1837347

PATIENT
  Age: 57 Year
  Sex: Male

DRUGS (1)
  1. CISPLATIN. [Suspect]
     Active Substance: CISPLATIN
     Indication: OROPHARYNGEAL CANCER
     Dosage: RECEIVED 3 COURSES.
     Route: 065

REACTIONS (3)
  - Vascular insufficiency [Recovered/Resolved]
  - Spinal instability [Recovered/Resolved]
  - Osteomyelitis [Recovered/Resolved]
